FAERS Safety Report 8670182 (Version 2)
Quarter: 2013Q1

REPORT INFORMATION
  Report Type: Report from Study
  Country: JP (occurrence: JP)
  Receive Date: 20120718
  Receipt Date: 20130227
  Transmission Date: 20140127
  Serious: Yes (Hospitalization)
  Sender: FDA-Public Use
  Company Number: JP-009507513-1207JPN000108

PATIENT
  Age: 48 Year
  Sex: Male
  Weight: 84 kg

DRUGS (18)
  1. PEGINTRON [Suspect]
     Indication: CHRONIC HEPATITIS C
     Dosage: 1.5 MICROGRAM PER KILOGRAM, QW
     Route: 058
     Dates: start: 20120509
  2. REBETOL [Suspect]
     Indication: CHRONIC HEPATITIS C
     Dosage: 1000 MG, QD
     Route: 048
     Dates: start: 20120509, end: 20120530
  3. REBETOL [Suspect]
     Dosage: 800 MG, QD
     Route: 048
     Dates: start: 20120530
  4. TELAVIC [Suspect]
     Indication: CHRONIC HEPATITIS C
     Dosage: 2250 MG, QD
     Route: 048
     Dates: start: 20120509
  5. PREDONINE [Suspect]
     Indication: RASH
     Dosage: 20 MG, QD
     Route: 048
     Dates: start: 20120512
  6. PREDONINE [Suspect]
     Dosage: 7.5 MG, QD
     Route: 048
     Dates: end: 20120704
  7. LOXONIN [Concomitant]
     Dosage: UNK UNK, PRN
     Route: 048
     Dates: start: 20120509, end: 20120512
  8. XYZAL [Concomitant]
     Indication: RASH
     Dosage: 5 MG, QD
     Route: 048
     Dates: end: 20120718
  9. XYZAL [Concomitant]
     Indication: PRURITUS
  10. PRIMPERAN [Concomitant]
     Indication: NAUSEA
     Dosage: UNK UNK, PRN
     Route: 048
     Dates: start: 20120511
  11. PRIMPERAN [Concomitant]
     Dosage: 5 MG/DAY, PRN
     Dates: start: 20120718
  12. NOVORAPID [Concomitant]
     Indication: HYPERGLYCAEMIA
     Dosage: 11 UNITS/DAY (ADJUSTED AS NEEDED BY MONITORING THE BLOOD-SUGAR LEVEL)
     Route: 042
     Dates: start: 20120530
  13. AMOBAN [Concomitant]
     Indication: INSOMNIA
     Dosage: 10 MG/DAY, PRN
     Route: 048
     Dates: start: 20120613
  14. AMOBAN [Concomitant]
     Dosage: 5 MG, QD
     Route: 048
  15. NOVORAPID [Concomitant]
     Indication: DIABETES MELLITUS MANAGEMENT
     Dosage: 46 UNITS, QD
     Route: 042
  16. NERISONA [Concomitant]
     Indication: RASH
     Dosage: UNK, PRN
     Route: 061
     Dates: start: 20120620
  17. NERISONA [Concomitant]
     Indication: PRURITUS
  18. LEVEMIR [Concomitant]
     Indication: DIABETES MELLITUS MANAGEMENT
     Dosage: 6 UNITS/DAY, QD
     Route: 042

REACTIONS (1)
  - Diabetes mellitus [Recovering/Resolving]
